FAERS Safety Report 5278321-2 (Version None)
Quarter: 2007Q1

REPORT INFORMATION
  Report Type: 
  Country: None (occurrence: None)
  Receive Date: 20070328
  Receipt Date: 20070315
  Transmission Date: 20070707
  Serious: Yes (Hospitalization)
  Sender: FDA-Public Use
  Company Number: AU-NOVOPROD-261680

PATIENT
  Sex: Male

DRUGS (1)
  1. MIXTARD 30/70 PENFILL [Suspect]

REACTIONS (1)
  - CARDIAC DISORDER [None]
